FAERS Safety Report 7958162-5 (Version None)
Quarter: 2011Q4

REPORT INFORMATION
  Report Type: 
  Country: None (occurrence: None)
  Receive Date: 20111205
  Receipt Date: 20111130
  Transmission Date: 20120403
  Serious: Yes (Life-Threatening, Hospitalization, Other)
  Sender: FDA-Public Use
  Company Number: DE-PFIZER INC-2011028752

PATIENT
  Age: 69 Year
  Sex: Female
  Weight: 79 kg

DRUGS (3)
  1. RAMIPRIL [Suspect]
     Dosage: 1.25 MG-0-2.5 MG DAILY
     Route: 048
     Dates: start: 20101013, end: 20101016
  2. BISOPROLOL [Concomitant]
     Indication: HYPERTENSION
     Dosage: 2.5 MG, 2X/DAY
     Route: 048
     Dates: start: 20090101
  3. RAMIPRIL [Suspect]
     Indication: HYPERTENSION
     Dosage: 1.25 MG, 1X/DAY
     Route: 048
     Dates: start: 20101011, end: 20101013

REACTIONS (8)
  - ANXIETY [None]
  - LOCAL SWELLING [None]
  - RETCHING [None]
  - ANGIOEDEMA [None]
  - PHARYNGEAL OEDEMA [None]
  - BLOOD PRESSURE INCREASED [None]
  - DYSPHAGIA [None]
  - RESTLESSNESS [None]
